FAERS Safety Report 5319813-7 (Version None)
Quarter: 2007Q2

REPORT INFORMATION
  Report Type: 
  Country: None (occurrence: None)
  Receive Date: 20070509
  Receipt Date: 20061130
  Transmission Date: 20071010
  Serious: Yes (Other)
  Sender: FDA-Public Use
  Company Number: LU-NOVOPROD-258425

PATIENT
  Age: 6 Year
  Sex: Female

DRUGS (1)
  1. NORDITROPIN [Suspect]
     Dosage: 25 UG/KG, QD

REACTIONS (1)
  - PANCREATITIS ACUTE [None]
